FAERS Safety Report 6918557-5 (Version None)
Quarter: 2010Q3

REPORT INFORMATION
  Report Type: 
  Country: None (occurrence: None)
  Receive Date: 20100811
  Receipt Date: 20100803
  Transmission Date: 20110219
  Serious: Yes (Hospitalization)
  Sender: FDA-Public Use
  Company Number: US-JNJFOC-20100606233

PATIENT
  Sex: Male
  Weight: 85.73 kg

DRUGS (1)
  1. HALDOL [Suspect]
     Indication: ANXIETY
     Route: 048

REACTIONS (2)
  - DYSPNOEA [None]
  - MUSCLE SPASMS [None]
